FAERS Safety Report 14756359 (Version 2)
Quarter: 2018Q2

REPORT INFORMATION
  Report Type: Spontaneous
  Country: AU (occurrence: AU)
  Receive Date: 20180413
  Receipt Date: 20180608
  Transmission Date: 20180711
  Serious: Yes (Other)
  Sender: FDA-Public Use
  Company Number: AU-GLAXOSMITHKLINE-AU2018GSK061349

PATIENT
  Age: 82 Year
  Sex: Female

DRUGS (2)
  1. VOLTAREN EMULGEL [Suspect]
     Active Substance: DICLOFENAC DIETHYLAMINE
     Indication: ARTHRITIS
     Dosage: UNK (APPLY IT AT NIGHT TIME)
  2. VOLTAREN OSTEO GEL 12 HOURLY [Suspect]
     Active Substance: DICLOFENAC DIETHYLAMINE
     Indication: ARTHRITIS
     Dosage: UNK

REACTIONS (3)
  - Product use issue [Unknown]
  - Drug dependence [Unknown]
  - Drug ineffective [Unknown]
